FAERS Safety Report 23794309 (Version 1)
Quarter: 2024Q2

REPORT INFORMATION
  Report Type: Spontaneous
  Country: US (occurrence: US)
  Receive Date: 20240429
  Receipt Date: 20240429
  Transmission Date: 20240716
  Serious: No
  Sender: FDA-Public Use
  Company Number: US-PROCTER_AND_GAMBLE-GS24036971

PATIENT
  Sex: Male
  Weight: 88.435 kg

DRUGS (1)
  1. OLD SPICE OASIS WITH VANILLA NOTES (ALUMINUM ZIRCONIUM TETRACHLOROHYDR [Suspect]
     Active Substance: ALUMINUM ZIRCONIUM TETRACHLOROHYDREX GLY
     Indication: Personal hygiene
     Dosage: NORMAL USAGE 2X DAILY
     Route: 061
     Dates: start: 202402, end: 20240302

REACTIONS (9)
  - Skin infection [Unknown]
  - Dermatitis contact [Unknown]
  - Skin haemorrhage [Unknown]
  - Chemical burn of skin [Unknown]
  - Rash [Not Recovered/Not Resolved]
  - Blister [Recovering/Resolving]
  - Pain of skin [Recovering/Resolving]
  - Scar [Unknown]
  - Blood pressure systolic increased [Unknown]

NARRATIVE: CASE EVENT DATE: 20240101
